FAERS Safety Report 20461537 (Version 1)
Quarter: 2022Q1

REPORT INFORMATION
  Report Type: Spontaneous
  Country: TW (occurrence: None)
  Receive Date: 20220211
  Receipt Date: 20220211
  Transmission Date: 20220424
  Serious: Yes (Hospitalization)
  Sender: FDA-Public Use
  Company Number: TW-ACS-002187

PATIENT
  Age: 79 Year
  Sex: Female

DRUGS (15)
  1. CEFEPIME [Suspect]
     Active Substance: CEFEPIME HYDROCHLORIDE
     Indication: Device related infection
     Route: 042
  2. VANCOMYCIN [Concomitant]
     Active Substance: VANCOMYCIN
     Indication: Device related infection
     Route: 042
  3. ESTAZOLAM [Concomitant]
     Active Substance: ESTAZOLAM
     Route: 065
  4. ASPIRIN [Concomitant]
     Active Substance: ASPIRIN
     Route: 065
  5. BISOPROLOL [Concomitant]
     Active Substance: BISOPROLOL
     Route: 065
  6. VALSARTAN [Concomitant]
     Active Substance: VALSARTAN
     Route: 065
  7. ISOSORBIDE [Concomitant]
     Active Substance: ISOSORBIDE
     Route: 065
  8. ATORVASTATIN [Concomitant]
     Active Substance: ATORVASTATIN
     Route: 065
  9. NIFEDIPINE [Concomitant]
     Active Substance: NIFEDIPINE
     Dosage: NIFEDIPINE 60 MG/D
     Route: 065
  10. CLOPIDOGREL [Concomitant]
     Active Substance: CLOPIDOGREL BISULFATE
     Route: 065
  11. CHLORPHENIRAMINE [Concomitant]
     Active Substance: CHLORPHENIRAMINE
     Route: 065
  12. CALCIUM ACETATE [Concomitant]
     Active Substance: CALCIUM ACETATE
     Route: 065
  13. PANTOPRAZOLE [Concomitant]
     Active Substance: PANTOPRAZOLE
     Route: 065
  14. LINAGLIPTIN [Concomitant]
     Active Substance: LINAGLIPTIN
     Route: 065
  15. INSULIN DETEMIR [Concomitant]
     Active Substance: INSULIN DETEMIR

REACTIONS (1)
  - Depression [Recovered/Resolved]
